FAERS Safety Report 8016083-6 (Version None)
Quarter: 2011Q4

REPORT INFORMATION
  Report Type: 
  Country: None (occurrence: None)
  Receive Date: 20111230
  Receipt Date: 20111221
  Transmission Date: 20120403
  Serious: Yes (Other)
  Sender: FDA-Public Use
  Company Number: SE-AMGEN-SWESP2011068018

PATIENT
  Age: 61 Year
  Sex: Male

DRUGS (2)
  1. MABTHERA [Concomitant]
     Indication: PRODUCT USED FOR UNKNOWN INDICATION
  2. NPLATE [Suspect]
     Indication: PRODUCT USED FOR UNKNOWN INDICATION
     Dosage: UNK
     Dates: start: 20110901, end: 20111201

REACTIONS (1)
  - VENOUS THROMBOSIS LIMB [None]
